FAERS Safety Report 6740203-4 (Version None)
Quarter: 2010Q2

REPORT INFORMATION
  Report Type: 
  Country: None (occurrence: None)
  Receive Date: 20100525
  Receipt Date: 20100517
  Transmission Date: 20101027
  Serious: Yes (Hospitalization)
  Sender: FDA-Public Use
  Company Number: A0860011A

PATIENT
  Age: 58 Year
  Sex: Male

DRUGS (9)
  1. AVANDIA [Suspect]
     Dosage: 4MG PER DAY
     Route: 048
     Dates: start: 20030101, end: 20051101
  2. UNIVASC [Concomitant]
  3. ALLOPURINOL [Concomitant]
  4. LASIX [Concomitant]
  5. UNSPECIFIED MEDICATION [Concomitant]
  6. ATACAND [Concomitant]
  7. GLUCOPHAGE [Concomitant]
  8. STARLIX [Concomitant]
  9. BAKING SODA [Concomitant]

REACTIONS (6)
  - AMNESIA [None]
  - ASTHENIA [None]
  - CARDIAC DISORDER [None]
  - CARDIAC FAILURE [None]
  - HEART RATE DECREASED [None]
  - MALAISE [None]
